FAERS Safety Report 15126044 (Version 1)
Quarter: 2018Q3

REPORT INFORMATION
  Report Type: Spontaneous
  Country: US (occurrence: US)
  Receive Date: 20180710
  Receipt Date: 20180710
  Transmission Date: 20181010
  Serious: No
  Sender: FDA-Public Use
  Company Number: US-MYLANLABS-2018M1049432

PATIENT
  Sex: Female

DRUGS (1)
  1. EPIPEN [Suspect]
     Active Substance: EPINEPHRINE
     Indication: ANAPHYLACTIC SHOCK

REACTIONS (2)
  - Headache [Unknown]
  - Heart rate increased [Unknown]

NARRATIVE: CASE EVENT DATE: 2017
